FAERS Safety Report 20097138 (Version 1)
Quarter: 2021Q4

REPORT INFORMATION
  Report Type: Spontaneous
  Country: US (occurrence: None)
  Receive Date: 20211120
  Receipt Date: 20211120
  Transmission Date: 20220303
  Serious: Yes (Life-Threatening, Other)
  Sender: FDA-Public Use
  Company Number: None

PATIENT
  Age: 7 Week
  Sex: Male

DRUGS (1)
  1. CANNABIDIOL\.DELTA.8-TETRAHYDROCANNABINOL [Suspect]
     Active Substance: CANNABIDIOL\.DELTA.8-TETRAHYDROCANNABINOL
     Indication: Substance use
     Dosage: OTHER QUANTITY : 25 TABLET(S);?
     Dates: start: 20211114, end: 20211114

REACTIONS (4)
  - Consciousness fluctuating [None]
  - Suicidal ideation [None]
  - Confusional state [None]
  - Hallucination [None]

NARRATIVE: CASE EVENT DATE: 20211115
